FAERS Safety Report 4896816-8 (Version None)
Quarter: 2006Q1

REPORT INFORMATION
  Report Type: 
  Country: None (occurrence: None)
  Receive Date: 20060126
  Receipt Date: 20060117
  Transmission Date: 20060701
  Serious: Yes (Other)
  Sender: FDA-Public Use
  Company Number: 2003-06-2483

PATIENT
  Age: 55 Year

DRUGS (2)
  1. TEMODAL [Suspect]
     Indication: ASTROCYTOMA
     Dosage: 75 MG/M2 QD ORAL
     Route: 048
     Dates: start: 20010101
  2. RADIATION THERAPY NO DOSE FORM [Suspect]
     Indication: ASTROCYTOMA
     Dosage: 60 GY X-RAY THERAPY
     Dates: start: 20010101

REACTIONS (1)
  - LYMPHOMA [None]
